FAERS Safety Report 4591340-4 (Version None)
Quarter: 2005Q1

REPORT INFORMATION
  Report Type: 
  Country: None (occurrence: None)
  Receive Date: 20050225
  Receipt Date: 20041111
  Transmission Date: 20050727
  Serious: Yes (Disabling, Other)
  Sender: FDA-Public Use
  Company Number: US-BRISTOL-MYERS SQUIBB COMPANY-12764304

PATIENT
  Age: 55 Year
  Sex: Female
  Weight: 68 kg

DRUGS (7)
  1. MEGACE [Suspect]
     Indication: HYSTERECTOMY
     Route: 048
     Dates: start: 20030201, end: 20040814
  2. ALEVE [Concomitant]
  3. TYLENOL (CAPLET) [Concomitant]
  4. VITAMIN B COMPLEX CAP [Concomitant]
  5. SYNTHROID [Concomitant]
  6. PERCOCET [Concomitant]
  7. ULTRACET [Concomitant]

REACTIONS (3)
  - ASTHENIA [None]
  - OEDEMA PERIPHERAL [None]
  - PAIN IN EXTREMITY [None]
